FAERS Safety Report 9258902 (Version 2)
Quarter: 2013Q3

REPORT INFORMATION
  Report Type: Spontaneous
  Country: BR (occurrence: BR)
  Receive Date: 20130426
  Receipt Date: 20130802
  Transmission Date: 20140515
  Serious: No
  Sender: FDA-Public Use
  Company Number: BR-GLAXOSMITHKLINE-A1021494A

PATIENT
  Sex: Female

DRUGS (3)
  1. SERETIDE [Suspect]
     Indication: ASTHMA
     Route: 055
     Dates: start: 2008
  2. BUDECORT [Concomitant]
  3. UNKNOWN DRUG FOR ANXIETY [Concomitant]

REACTIONS (2)
  - Tremor [Recovered/Resolved]
  - Movement disorder [Recovered/Resolved]
